FAERS Safety Report 9881663 (Version 1)
Quarter: 2014Q1

REPORT INFORMATION
  Report Type: Spontaneous
  Country: US (occurrence: US)
  Receive Date: 20140207
  Receipt Date: 20140207
  Transmission Date: 20141002
  Serious: No
  Sender: FDA-Public Use
  Company Number: US-BAYER-2014-015384

PATIENT
  Age: 33 Year
  Sex: Female

DRUGS (1)
  1. MIRENA [Suspect]
     Dosage: 20 ?G/D, CONT
     Route: 015
     Dates: start: 20140123, end: 20140123

REACTIONS (6)
  - Tremor [None]
  - Panic attack [None]
  - Crying [None]
  - Dyspnoea [None]
  - Procedural pain [None]
  - Device expulsion [Recovered/Resolved]
